FAERS Safety Report 6402540-2 (Version None)
Quarter: 2009Q4

REPORT INFORMATION
  Report Type: 
  Country: None (occurrence: None)
  Receive Date: 20091015
  Receipt Date: 20091006
  Transmission Date: 20100525
  Serious: Yes (Death, Hospitalization, Other)
  Sender: FDA-Public Use
  Company Number: GR-ABBOTT-09P-066-0597137-00

PATIENT
  Sex: Male
  Weight: 64 kg

DRUGS (4)
  1. ZEMPLAR [Suspect]
     Indication: HYPERPARATHYROIDISM SECONDARY
     Route: 042
     Dates: start: 20070101, end: 20090320
  2. DARBEPOETIN [Concomitant]
     Indication: DRUG USE FOR UNKNOWN INDICATION
  3. RENAGEL [Concomitant]
     Indication: DRUG USE FOR UNKNOWN INDICATION
  4. SINTROM [Concomitant]
     Indication: DRUG USE FOR UNKNOWN INDICATION
     Dosage: 2MG/2DAYS

REACTIONS (5)
  - ACUTE CORONARY SYNDROME [None]
  - ARRHYTHMIA [None]
  - ASPIRATION [None]
  - CARDIAC ARREST [None]
  - CARDIAC FAILURE [None]
